FAERS Safety Report 15133809 (Version 2)
Quarter: 2018Q3

REPORT INFORMATION
  Report Type: Report from Study
  Country: FR (occurrence: FR)
  Receive Date: 20180712
  Receipt Date: 20180725
  Transmission Date: 20181010
  Serious: Yes (Death, Other)
  Sender: FDA-Public Use
  Company Number: FR-JAZZ-2018-FR-010585

PATIENT

DRUGS (1)
  1. DEFITELIO [Suspect]
     Active Substance: DEFIBROTIDE SODIUM
     Indication: VENOOCCLUSIVE DISEASE
     Dosage: 25 MG/KG, QD
     Dates: start: 20170628

REACTIONS (7)
  - Renal failure [Fatal]
  - Respiratory failure [Fatal]
  - Coagulopathy [Unknown]
  - General physical health deterioration [Fatal]
  - Acinetobacter infection [Unknown]
  - Skin disorder [Fatal]
  - Enterococcal infection [Unknown]

NARRATIVE: CASE EVENT DATE: 20170705
